FAERS Safety Report 18474087 (Version 2)
Quarter: 2020Q4

REPORT INFORMATION
  Report Type: Spontaneous
  Country: US (occurrence: US)
  Receive Date: 20201106
  Receipt Date: 20201204
  Transmission Date: 20210114
  Serious: No
  Sender: FDA-Public Use
  Company Number: US-PFIZER INC-2016582535

PATIENT
  Age: 83 Year
  Sex: Female
  Weight: 90.7 kg

DRUGS (31)
  1. CODEINE [Concomitant]
     Active Substance: CODEINE
     Indication: MIGRAINE
     Dosage: UNK, AS NEEDED
  2. PRAVASTATIN [PRAVASTATIN SODIUM] [Concomitant]
     Active Substance: PRAVASTATIN
     Dosage: 40 MG, 1X/DAY (PM)
  3. VITAMIN D3 [Concomitant]
     Active Substance: CHOLECALCIFEROL
     Dosage: 2000 IU, 1X/DAY (AM)
     Dates: start: 2000
  4. VITAMIN E [Concomitant]
     Active Substance: .ALPHA.-TOCOPHEROL
     Dosage: 400 IU, 1X/DAY (AM)
     Dates: start: 1998
  5. BIOTIN [Concomitant]
     Active Substance: BIOTIN
     Indication: NAIL DISORDER
  6. ASPIRIN [ACETYLSALICYLIC ACID] [Concomitant]
     Active Substance: ASPIRIN
     Dosage: 81 MG, 1X/DAY (AM)
     Dates: start: 1997
  7. CALCIUM [Concomitant]
     Active Substance: CALCIUM
     Dosage: 1000 MG, 1X/DAY (AM
     Dates: start: 2003
  8. LYRICA [Suspect]
     Active Substance: PREGABALIN
     Indication: BURNING SENSATION
     Dosage: UNK
     Dates: start: 2013
  9. THYROXINE [Concomitant]
     Active Substance: LEVOTHYROXINE
     Dosage: 88 UG, UNK (1/2 HR BEFORE BREAKFAST)
     Dates: start: 2003
  10. ZOLPIDEM TARTRATE ACTAVIS [Concomitant]
     Active Substance: ZOLPIDEM TARTRATE
     Dosage: 6.25 MG, 1X/DAY (AT BEDTIME)
     Dates: start: 2016
  11. MAGNESIUM [Concomitant]
     Active Substance: MAGNESIUM
     Dosage: 500 MG, 1X/DAY (AM)
     Dates: start: 2003
  12. TYLENOL [Concomitant]
     Active Substance: ACETAMINOPHEN
     Indication: PAIN
     Dosage: UNK
  13. LYRICA [Suspect]
     Active Substance: PREGABALIN
     Indication: PAIN IN EXTREMITY
     Dosage: 75 MG, 2X/DAY (1 IN AM + 1 IN PM)
     Route: 048
     Dates: start: 20150209
  14. MIRAPEX [Concomitant]
     Active Substance: PRAMIPEXOLE DIHYDROCHLORIDE
     Dosage: 0.25 MG, 2X/DAY (1 AT NOON + 1 BEFORE BEDTIME)
     Dates: start: 2010
  15. VITAMIN B COMPLEX [Concomitant]
     Active Substance: CYANOCOBALAMIN\DEXPANTHENOL\NIACINAMIDE\PYRIDOXINE HYDROCHLORIDE\RIBOFLAVIN 5^-PHOSPHATE SODIUM\THIAMINE HYDROCHLORIDE\VITAMIN B COMPLEX
     Dosage: 1000 UG, 1X/DAY (AM)
     Dates: start: 1999
  16. MAGNESIUM [Concomitant]
     Active Substance: MAGNESIUM
     Dosage: 400 MG, 1X/DAY (AM)
     Dates: start: 2003
  17. ZINC. [Concomitant]
     Active Substance: ZINC
     Dosage: 25 MG, 1X/DAY (AM
     Dates: start: 2003
  18. CHLORTHALIDONE. [Concomitant]
     Active Substance: CHLORTHALIDONE
     Dosage: 25 MG, 1X/DAY (AM)
     Dates: start: 201608
  19. TRAMADOL. [Concomitant]
     Active Substance: TRAMADOL
     Indication: PAIN
     Dosage: 50 MG, UNK
     Dates: start: 2014
  20. OMEPRAZOLE. [Concomitant]
     Active Substance: OMEPRAZOLE
     Dosage: 20 MG, UNK (1/2 HR BEFORE BREAKFAST
     Dates: start: 2003
  21. GLUCOSAMINE + CHONDROITIN SULFATE [Concomitant]
     Active Substance: CHONDROITIN SULFATE (BOVINE)\GLUCOSAMINE SULFATE
     Dosage: UNK, 2X/DAY (AM/GLUCOSAMINE 1500 CHONDROITIN 1250 )
     Dates: start: 1997
  22. CITRUCEL [Concomitant]
     Active Substance: METHYLCELLULOSE (4000 MPA.S)
     Dosage: UNK, 2X/DAY (AM)
     Dates: start: 1999
  23. OCUVITE LUTEIN [ASCORBIC ACID;CUPRIC OXIDE;TOCOPHERYL ACETATE;XANTOFYL [Concomitant]
     Dosage: UNK, 1X/DAY (AM), VITAMIN C, E + ZINC
     Dates: start: 2011
  24. TARENOL [Concomitant]
     Indication: MIGRAINE
     Dosage: UNK, AS NEEDED
  25. ADVIL [IBUPROFEN] [Concomitant]
     Active Substance: IBUPROFEN
     Indication: PAIN
     Dosage: UNK
  26. LYRICA [Suspect]
     Active Substance: PREGABALIN
     Indication: GAIT DISTURBANCE
     Dosage: 75 MG, 2X/DAY (ONCE IN THE AM AND ONCE IN THE EVENING)
     Route: 048
     Dates: start: 2010
  27. TOPROL XL [Concomitant]
     Active Substance: METOPROLOL SUCCINATE
     Dosage: 50 MG, 2X/DAY (AM
     Dates: start: 20161116
  28. BIOTIN [Concomitant]
     Active Substance: BIOTIN
     Indication: HAIR DISORDER
     Dosage: 5000 UG, 3X/DAY (AM)
     Dates: start: 2015
  29. LYRICA [Suspect]
     Active Substance: PREGABALIN
     Indication: NERVE INJURY
     Dosage: 75 MG, 1X/DAY
     Dates: start: 20190316
  30. COQ10 [ASCORBIC ACID;BETACAROTENE;CUPRIC OXIDE;MANGANESE SULFATE;SELEN [Concomitant]
     Dosage: 100 MG, 1X/DAY (AM)
     Dates: start: 2000
  31. BIOTIN [Concomitant]
     Active Substance: BIOTIN
     Indication: SKIN DISORDER

REACTIONS (4)
  - Confusional state [Unknown]
  - Intentional product use issue [Unknown]
  - Product packaging quantity issue [Unknown]
  - Hypoacusis [Unknown]

NARRATIVE: CASE EVENT DATE: 20190316
